FAERS Safety Report 6342139-X (Version None)
Quarter: 2009Q3

REPORT INFORMATION
  Report Type: 
  Country: None (occurrence: None)
  Receive Date: 20090903
  Receipt Date: 20090903
  Transmission Date: 20100115
  Serious: No
  Sender: FDA-Public Use
  Company Number: None

PATIENT
  Sex: Male
  Weight: 70.7611 kg

DRUGS (1)
  1. FUROSEMIDE - MFG MYLAN VAB/ CRE/ CRE [Suspect]
     Indication: OEDEMA PERIPHERAL
     Dosage: 20 MG TABLET DAILY MOUTH
     Route: 048
     Dates: start: 20090101

REACTIONS (1)
  - DIZZINESS [None]
